FAERS Safety Report 11505568 (Version 1)
Quarter: 2015Q3

REPORT INFORMATION
  Report Type: Spontaneous
  Country: US (occurrence: US)
  Receive Date: 20150915
  Receipt Date: 20150915
  Transmission Date: 20151125
  Serious: No
  Sender: FDA-Public Use
  Company Number: US-AMGEN-USASP2015094159

PATIENT
  Age: 18 Year
  Sex: Female
  Weight: 75.74 kg

DRUGS (2)
  1. ENBREL [Suspect]
     Active Substance: ETANERCEPT
     Indication: JUVENILE IDIOPATHIC ARTHRITIS
     Dosage: 50 MG, UNK
     Route: 058
  2. BORAGE OIL [Concomitant]
     Active Substance: BORAGE OIL
     Dosage: UNK

REACTIONS (1)
  - Condition aggravated [Unknown]
